FAERS Safety Report 4288918-4 (Version None)
Quarter: 2004Q1

REPORT INFORMATION
  Report Type: 
  Country: None (occurrence: None)
  Receive Date: 20040205
  Receipt Date: 20040121
  Transmission Date: 20041129
  Serious: Yes (Hospitalization)
  Sender: FDA-Public Use
  Company Number: 2004SE00285

PATIENT
  Age: 80 Year
  Sex: Female
  Weight: 48 kg

DRUGS (7)
  1. BLOPRESS [Suspect]
     Indication: HYPERTENSION
     Dosage: 8 MG QD PO
     Route: 048
     Dates: start: 20031213, end: 20040105
  2. DASEN [Concomitant]
  3. REBAMIPIDE [Concomitant]
  4. FOSFOMYCIN SODIUM [Concomitant]
  5. MINOCYCLINE HCL [Concomitant]
  6. PL GRAN. [Concomitant]
  7. TIARAMIDE HYDROCHLORIDE [Concomitant]

REACTIONS (8)
  - CARDIOVASCULAR DISORDER [None]
  - DECREASED APPETITE [None]
  - DEHYDRATION [None]
  - ERYTHEMA [None]
  - NASOPHARYNGEAL DISORDER [None]
  - PYREXIA [None]
  - RHABDOMYOLYSIS [None]
  - UPPER RESPIRATORY TRACT INFLAMMATION [None]
